FAERS Safety Report 8791457 (Version 1)
Quarter: 2012Q4

REPORT INFORMATION
  Report Type: Spontaneous
  Country: US (occurrence: None)
  Receive Date: 20120914
  Receipt Date: 20120914
  Transmission Date: 20130627
  Serious: No
  Sender: FDA-Public Use
  Company Number: None

PATIENT
  Age: 71 Year
  Sex: Male
  Weight: 99.79 kg

DRUGS (1)
  1. LIPITOR [Suspect]
     Route: 048
     Dates: start: 20050615, end: 20111107

REACTIONS (4)
  - Muscle disorder [None]
  - Abasia [None]
  - Muscle spasms [None]
  - Muscle spasms [None]
